FAERS Safety Report 6683444-7 (Version None)
Quarter: 2010Q2

REPORT INFORMATION
  Report Type: 
  Country: None (occurrence: None)
  Receive Date: 20100415
  Receipt Date: 20100406
  Transmission Date: 20101027
  Serious: Yes (Hospitalization)
  Sender: FDA-Public Use
  Company Number: JP-GILEAD-2010-0028399

PATIENT
  Age: 73 Year
  Sex: Male

DRUGS (1)
  1. HEPSERA [Suspect]
     Indication: HEPATITIS B
     Dates: start: 20040101

REACTIONS (13)
  - ACIDOSIS HYPERCHLORAEMIC [None]
  - BLOOD 25-HYDROXYCHOLECALCIFEROL DECREASED [None]
  - BONE PAIN [None]
  - FANCONI SYNDROME ACQUIRED [None]
  - HYPOCALCAEMIA [None]
  - HYPOKALAEMIA [None]
  - HYPOPHOSPHATAEMIA [None]
  - HYPOURICAEMIA [None]
  - OSTEOMALACIA [None]
  - RENAL GLYCOSURIA [None]
  - RENAL TUBULAR ACIDOSIS [None]
  - RENAL TUBULAR DISORDER [None]
  - VITAMIN D DEFICIENCY [None]
